FAERS Safety Report 5355145-9 (Version None)
Quarter: 2007Q2

REPORT INFORMATION
  Report Type: 
  Country: None (occurrence: None)
  Receive Date: 20070613
  Receipt Date: 20070601
  Transmission Date: 20071010
  Serious: Yes (Life-Threatening, Hospitalization)
  Sender: FDA-Public Use
  Company Number: HQWYE516204APR07

PATIENT
  Sex: Female

DRUGS (5)
  1. PANTOZOL [Suspect]
     Indication: ABDOMINAL PAIN UPPER
     Route: 048
     Dates: start: 20061123, end: 20061213
  2. PANTOZOL [Suspect]
     Route: 048
     Dates: start: 20061229
  3. PANTOZOL [Concomitant]
     Route: 042
     Dates: start: 20061220, end: 20061228
  4. FERROGLYCINE SULFATE COMPLEX [Concomitant]
     Route: 048
  5. PARACETAMOL [Concomitant]
     Indication: TOOTHACHE
     Dates: start: 20061101, end: 20061101

REACTIONS (9)
  - AMNESIA [None]
  - DISORIENTATION [None]
  - DISTURBANCE IN ATTENTION [None]
  - HAEMATEMESIS [None]
  - LOSS OF CONSCIOUSNESS [None]
  - MENOMETRORRHAGIA [None]
  - NERVOUS SYSTEM DISORDER [None]
  - SPEECH DISORDER [None]
  - THROMBOTIC THROMBOCYTOPENIC PURPURA [None]
